FAERS Safety Report 20280493 (Version 2)
Quarter: 2022Q1

REPORT INFORMATION
  Report Type: Report from Study
  Country: ES (occurrence: ES)
  Receive Date: 20220103
  Receipt Date: 20220315
  Transmission Date: 20220423
  Serious: Yes (Hospitalization)
  Sender: FDA-Public Use
  Company Number: ES-BEH-2021139930

PATIENT
  Age: 64 Year
  Sex: Male
  Weight: 83 kg

DRUGS (2)
  1. RIASTAP [Suspect]
     Active Substance: FIBRINOGEN HUMAN
     Indication: Haemorrhage
     Dosage: 4 GRAM
     Route: 042
     Dates: start: 20210616, end: 20210616
  2. RIASTAP [Suspect]
     Active Substance: FIBRINOGEN HUMAN
     Indication: Hypofibrinogenaemia

REACTIONS (11)
  - Post procedural haemorrhage [Recovered/Resolved]
  - No adverse event [Unknown]
  - Off label use [Unknown]
  - Hypovolaemic shock [Recovered/Resolved]
  - Anaemia [Recovered/Resolved]
  - Biliary anastomosis complication [Recovered/Resolved]
  - Pruritus [Recovered/Resolved]
  - Choluria [Recovered/Resolved]
  - Deficiency of bile secretion [Recovered/Resolved]
  - Cholangitis [Unknown]
  - Pyrexia [Unknown]

NARRATIVE: CASE EVENT DATE: 20210627
